FAERS Safety Report 17806425 (Version 1)
Quarter: 2020Q2

REPORT INFORMATION
  Report Type: Spontaneous
  Country: US (occurrence: US)
  Receive Date: 20200520
  Receipt Date: 20200520
  Transmission Date: 20200714
  Serious: No
  Sender: FDA-Public Use
  Company Number: US-BAYER-2020-091225

PATIENT
  Sex: Female

DRUGS (6)
  1. PEPTO-BISMOL [Suspect]
     Active Substance: BISMUTH SUBSALICYLATE
  2. CHOLESTEROL [Concomitant]
     Active Substance: CHOLESTEROL
  3. CLARITIN LIQUI-GELS [Suspect]
     Active Substance: LORATADINE
     Indication: HYPERSENSITIVITY
     Dosage: UNK
     Route: 048
     Dates: start: 201905, end: 20200517
  4. CLARITIN LIQUI-GELS [Suspect]
     Active Substance: LORATADINE
     Indication: NASOPHARYNGITIS
  5. HIGH BLOOD PRESSURURE [Concomitant]
  6. BENEFIBER [Suspect]
     Active Substance: STARCH, WHEAT

REACTIONS (3)
  - Diarrhoea [Unknown]
  - Faeces discoloured [Unknown]
  - Drug ineffective [Unknown]

NARRATIVE: CASE EVENT DATE: 202005
